FAERS Safety Report 18978794 (Version 1)
Quarter: 2021Q1

REPORT INFORMATION
  Report Type: Other
  Country: GB (occurrence: GB)
  Receive Date: 20210308
  Receipt Date: 20210308
  Transmission Date: 20210420
  Serious: Yes (Other)
  Sender: FDA-Public Use
  Company Number: GB-MACLEODS PHARMA UK LTD-MAC2021030359

PATIENT

DRUGS (2)
  1. BETAHISTINE HYDROCHLORIDE [Concomitant]
     Active Substance: BETAHISTINE HYDROCHLORIDE
     Indication: ILL-DEFINED DISORDER
     Dosage: UNK
     Route: 065
  2. SILDENAFIL 25 MG [Suspect]
     Active Substance: SILDENAFIL
     Indication: ILL-DEFINED DISORDER
     Dosage: 25 MILLIGRAM
     Route: 048
     Dates: start: 20210101

REACTIONS (2)
  - Nasal congestion [Recovered/Resolved]
  - Adverse drug reaction [Recovered/Resolved]
